FAERS Safety Report 17859284 (Version 1)
Quarter: 2020Q2

REPORT INFORMATION
  Report Type: Spontaneous
  Country: US (occurrence: US)
  Receive Date: 20200604
  Receipt Date: 20200604
  Transmission Date: 20200714
  Serious: No
  Sender: FDA-Public Use
  Company Number: NVSC2020US152632

PATIENT
  Sex: Female

DRUGS (1)
  1. RECLAST [Suspect]
     Active Substance: ZOLEDRONIC ACID
     Indication: PRODUCT USED FOR UNKNOWN INDICATION
     Dosage: 5 MG
     Route: 065

REACTIONS (13)
  - Dizziness [Unknown]
  - Arthralgia [Unknown]
  - Asthenia [Unknown]
  - Arthritis [Unknown]
  - Nasopharyngitis [Unknown]
  - Headache [Unknown]
  - Musculoskeletal stiffness [Unknown]
  - Joint swelling [Unknown]
  - Neck pain [Unknown]
  - Dysuria [Unknown]
  - Chills [Unknown]
  - Pyrexia [Unknown]
  - Pain in extremity [Unknown]
